FAERS Safety Report 5246506-7 (Version None)
Quarter: 2007Q1

REPORT INFORMATION
  Report Type: 
  Country: None (occurrence: None)
  Receive Date: 20070222
  Receipt Date: 20070222
  Transmission Date: 20070707
  Serious: No
  Sender: FDA-Public Use
  Company Number: None

PATIENT
  Sex: Male
  Weight: 83.9 kg

DRUGS (2)
  1. LEUPROLIDE ACETATE [Suspect]
     Dosage: 22.5 MG
  2. CASODEX [Suspect]
     Dosage: 9800 MG

REACTIONS (7)
  - CLAVICLE FRACTURE [None]
  - EMOTIONAL DISORDER [None]
  - IMPAIRED HEALING [None]
  - INJURY [None]
  - LOWER LIMB FRACTURE [None]
  - RIB FRACTURE [None]
  - ROAD TRAFFIC ACCIDENT [None]
